FAERS Safety Report 7719981-3 (Version None)
Quarter: 2011Q3

REPORT INFORMATION
  Report Type: 
  Country: None (occurrence: None)
  Receive Date: 20110831
  Receipt Date: 20110823
  Transmission Date: 20111222
  Serious: No
  Sender: FDA-Public Use
  Company Number: US-BIOGENIDEC-2011BI032711

PATIENT
  Sex: Female

DRUGS (3)
  1. TYSABRI [Suspect]
     Indication: MULTIPLE SCLEROSIS
     Route: 042
     Dates: start: 20100311, end: 20110428
  2. REBIF [Concomitant]
  3. TYSABRI [Suspect]
     Route: 042
     Dates: start: 20080228, end: 20081204

REACTIONS (3)
  - VOMITING [None]
  - FATIGUE [None]
  - INFLUENZA LIKE ILLNESS [None]
